FAERS Safety Report 4913888-2 (Version None)
Quarter: 2006Q1

REPORT INFORMATION
  Report Type: 
  Country: None (occurrence: None)
  Receive Date: 20060216
  Receipt Date: 20051013
  Transmission Date: 20060701
  Serious: Yes (Hospitalization)
  Sender: FDA-Public Use
  Company Number: US-MERCK-0510USA07526

PATIENT
  Age: 77 Year
  Sex: Female
  Weight: 74 kg

DRUGS (8)
  1. VIOXX [Suspect]
     Route: 048
     Dates: start: 19990831, end: 20040920
  2. MECLIZINE [Concomitant]
     Route: 065
  3. ACIPHEX [Concomitant]
     Route: 065
  4. ALLEGRA [Concomitant]
     Route: 065
  5. ASPIRIN [Concomitant]
     Route: 065
  6. NEURONTIN [Concomitant]
     Route: 065
  7. SOMA [Concomitant]
     Route: 065
  8. PREMARIN [Concomitant]
     Route: 065

REACTIONS (12)
  - CHEST DISCOMFORT [None]
  - CORONARY ARTERY DISEASE [None]
  - CORONARY ARTERY STENOSIS [None]
  - DEPRESSED LEVEL OF CONSCIOUSNESS [None]
  - DIZZINESS [None]
  - FEELING ABNORMAL [None]
  - HEADACHE [None]
  - HYPOKINESIA [None]
  - MENISCUS LESION [None]
  - MYOCARDIAL INFARCTION [None]
  - SINUS DISORDER [None]
  - SINUSITIS [None]
